FAERS Safety Report 6840606-3 (Version None)
Quarter: 2010Q3

REPORT INFORMATION
  Report Type: 
  Country: None (occurrence: None)
  Receive Date: 20100714
  Receipt Date: 20100705
  Transmission Date: 20110219
  Serious: Yes (Other)
  Sender: FDA-Public Use
  Company Number: B0665271A

PATIENT
  Sex: Female
  Weight: 57 kg

DRUGS (2)
  1. LAMICTAL [Suspect]
     Dosage: 25MG PER DAY
     Route: 065
     Dates: start: 20100508, end: 20100509
  2. FEVARIN [Concomitant]
     Indication: PRODUCT USED FOR UNKNOWN INDICATION
     Route: 065
     Dates: start: 20100203

REACTIONS (8)
  - ANXIETY [None]
  - CONFUSIONAL STATE [None]
  - DYSPEPSIA [None]
  - NAUSEA [None]
  - OFF LABEL USE [None]
  - RESTLESSNESS [None]
  - TENSION [None]
  - TINNITUS [None]
